FAERS Safety Report 12194320 (Version 1)
Quarter: 2016Q1

REPORT INFORMATION
  Report Type: Spontaneous
  Country: US (occurrence: None)
  Receive Date: 20160318
  Receipt Date: 20160318
  Transmission Date: 20160526
  Serious: Yes (Life-Threatening, Hospitalization, Disabling)
  Sender: FDA-Public Use
  Company Number: None

PATIENT
  Age: 38 Year
  Sex: Female
  Weight: 61.24 kg

DRUGS (6)
  1. JOLESSA [Concomitant]
     Active Substance: ETHINYL ESTRADIOL\LEVONORGESTREL
  2. GADAVIST [Suspect]
     Active Substance: GADOBUTROL
  3. BENADRYL [Concomitant]
     Active Substance: DIPHENHYDRAMINE HYDROCHLORIDE
  4. PREDNISONE. [Concomitant]
     Active Substance: PREDNISONE
  5. VITAMIN D [Concomitant]
     Active Substance: CHOLECALCIFEROL
  6. TYLENOL [Concomitant]
     Active Substance: ACETAMINOPHEN

REACTIONS (16)
  - Rash pruritic [None]
  - Contrast media reaction [None]
  - Cough [None]
  - Pollakiuria [None]
  - White blood cell count increased [None]
  - Burning sensation [None]
  - Arthralgia [None]
  - Back pain [None]
  - Dysgeusia [None]
  - Erythema [None]
  - Urine output increased [None]
  - Gait disturbance [None]
  - Dysphonia [None]
  - Drug ineffective [None]
  - Urinary tract infection [None]
  - Seasonal allergy [None]

NARRATIVE: CASE EVENT DATE: 20160125
